FAERS Safety Report 14755926 (Version 1)
Quarter: 2018Q2

REPORT INFORMATION
  Report Type: Spontaneous
  Country: US (occurrence: US)
  Receive Date: 20180413
  Receipt Date: 20180413
  Transmission Date: 20180711
  Serious: No
  Sender: FDA-Public Use
  Company Number: US-PFIZER INC-2018149951

PATIENT

DRUGS (1)
  1. ADVIL PM [Suspect]
     Active Substance: DIPHENHYDRAMINE CITRATE\IBUPROFEN
     Dosage: 2 DF, UNK (TWO CAPLETS)
     Dates: start: 20180410

REACTIONS (3)
  - Ocular hyperaemia [Unknown]
  - Somnolence [Unknown]
  - Asthenopia [Unknown]

NARRATIVE: CASE EVENT DATE: 201804
